FAERS Safety Report 22627463 (Version 1)
Quarter: 2023Q2

REPORT INFORMATION
  Report Type: Spontaneous
  Country: US (occurrence: US)
  Receive Date: 20230622
  Receipt Date: 20230622
  Transmission Date: 20230721
  Serious: Yes (Hospitalization, Other)
  Sender: FDA-Public Use
  Company Number: US-BEH-2023160121

PATIENT
  Age: 66 Year
  Sex: Male
  Weight: 91 kg

DRUGS (1)
  1. HUMAN IMMUNOGLOBULIN G [Suspect]
     Active Substance: HUMAN IMMUNOGLOBULIN G
     Indication: Guillain-Barre syndrome
     Dosage: 400 MILLIGRAM/KILOGRAM, QD
     Route: 042

REACTIONS (5)
  - Haemolytic anaemia [Recovering/Resolving]
  - Coombs direct test positive [Recovering/Resolving]
  - Dyspnoea [Unknown]
  - Lethargy [Unknown]
  - Asthenia [Unknown]
